FAERS Safety Report 5586231-6 (Version None)
Quarter: 2008Q1

REPORT INFORMATION
  Report Type: 
  Country: None (occurrence: None)
  Receive Date: 20080107
  Receipt Date: 20071226
  Transmission Date: 20080703
  Serious: Yes (Hospitalization)
  Sender: FDA-Public Use
  Company Number: 230397M07USA

PATIENT
  Age: 36 Year
  Sex: Female

DRUGS (3)
  1. REBIF [Suspect]
     Indication: MULTIPLE SCLEROSIS
     Dosage: 44 MCG, 1 IN 1 WEEKSM SUBCUTANEOUS; 44 MCGL 1 IN 1 WEEKS, SUBCUTANEOUS
     Route: 058
     Dates: end: 20071219
  2. REBIF [Suspect]
     Indication: MULTIPLE SCLEROSIS
     Dosage: 44 MCG, 1 IN 1 WEEKSM SUBCUTANEOUS; 44 MCGL 1 IN 1 WEEKS, SUBCUTANEOUS
     Route: 058
     Dates: start: 20060501
  3. CYMBALTA [Concomitant]

REACTIONS (2)
  - DEPRESSION [None]
  - SUICIDE ATTEMPT [None]
